FAERS Safety Report 6749703-4 (Version None)
Quarter: 2010Q2

REPORT INFORMATION
  Report Type: 
  Country: None (occurrence: None)
  Receive Date: 20100601
  Receipt Date: 20100524
  Transmission Date: 20101027
  Serious: Yes (Disabling, Other)
  Sender: FDA-Public Use
  Company Number: US-SANOFI-AVENTIS-2010SA030641

PATIENT
  Age: 72 Year
  Sex: Male

DRUGS (20)
  1. PLAVIX [Suspect]
     Route: 048
  2. COREG [Suspect]
     Route: 048
  3. ZANTAC [Suspect]
     Indication: PROPHYLAXIS
     Route: 042
  4. CARBOPLATIN [Suspect]
     Indication: CHEMOTHERAPY
     Route: 042
     Dates: start: 20100414
  5. DETROL [Suspect]
     Route: 048
  6. ZOFRAN [Suspect]
     Route: 042
  7. ZOFRAN [Suspect]
     Route: 042
  8. ASPIRIN [Suspect]
     Route: 048
  9. DEXAMETHASONE [Suspect]
     Route: 042
  10. DEXAMETHASONE [Suspect]
     Route: 042
  11. DIPHENHYDRAMINE HYDROCHLORIDE [Suspect]
     Indication: PROPHYLAXIS
     Route: 042
  12. FOSINOPRIL SODIUM [Suspect]
     Route: 048
  13. HYDROCHLOROTHIAZIDE [Suspect]
     Route: 048
  14. MEGACE [Suspect]
     Indication: APPETITE DISORDER
     Dosage: DOSE:40 MILLIGRAM(S)/MILLILITRE
     Route: 048
  15. PHENERGAN [Suspect]
     Indication: NAUSEA
     Route: 048
  16. SIMVASTATIN [Suspect]
     Route: 048
  17. TAXOL [Suspect]
     Indication: CHEMOTHERAPY
     Route: 042
     Dates: start: 20100414
  18. VITAMIN D [Suspect]
     Dosage: DOSE:5000 UNIT(S)
     Route: 042
  19. VITAMIN D [Suspect]
     Dosage: DOSE:5000 UNIT(S)
     Route: 042
  20. OMEPRAZOLE [Suspect]
     Route: 048

REACTIONS (23)
  - ABASIA [None]
  - ASTHENIA [None]
  - BLOOD CHLORIDE DECREASED [None]
  - BLOOD GLUCOSE INCREASED [None]
  - BLOOD POTASSIUM DECREASED [None]
  - BLOOD UREA INCREASED [None]
  - DECREASED APPETITE [None]
  - DEHYDRATION [None]
  - DIARRHOEA [None]
  - EATING DISORDER [None]
  - FAILURE TO THRIVE [None]
  - HAEMATOCRIT DECREASED [None]
  - HAEMOGLOBIN DECREASED [None]
  - HYPOCALCAEMIA [None]
  - HYPOMAGNESAEMIA [None]
  - HYPONATRAEMIA [None]
  - LISTLESS [None]
  - MONOCYTE COUNT DECREASED [None]
  - NEUTROPENIA [None]
  - PNEUMONIA [None]
  - PROTHROMBIN TIME PROLONGED [None]
  - RED BLOOD CELL COUNT DECREASED [None]
  - TACHYCARDIA [None]
